FAERS Safety Report 21239141 (Version 4)
Quarter: 2022Q4

REPORT INFORMATION
  Report Type: Spontaneous
  Country: CH (occurrence: CH)
  Receive Date: 20220822
  Receipt Date: 20221013
  Transmission Date: 20230112
  Serious: Yes (Death, Other)
  Sender: FDA-Public Use
  Company Number: CH-BRISTOL-MYERS SQUIBB COMPANY-2022-089608

PATIENT
  Age: 52 Year
  Sex: Female

DRUGS (1)
  1. IDHIFA [Suspect]
     Active Substance: ENASIDENIB MESYLATE
     Indication: Acute myeloid leukaemia
     Dosage: REGULAR DOSE
     Route: 048
     Dates: start: 20220718

REACTIONS (2)
  - Sepsis [Fatal]
  - Acute myeloid leukaemia recurrent [Fatal]
